FAERS Safety Report 7827437-2 (Version None)
Quarter: 2011Q4

REPORT INFORMATION
  Report Type: 
  Country: None (occurrence: None)
  Receive Date: 20111020
  Receipt Date: 20111007
  Transmission Date: 20120403
  Serious: Yes (Hospitalization)
  Sender: FDA-Public Use
  Company Number: US-BAYER-201042059NA

PATIENT
  Age: 16 Year
  Sex: Female
  Weight: 79.365 kg

DRUGS (4)
  1. SEASONALE [Concomitant]
     Dosage: UNK
     Dates: start: 20070101
  2. YASMIN [Suspect]
     Dosage: UNK
     Route: 048
     Dates: start: 20050501, end: 20060630
  3. ORTHO TRI-CYCLEN [Concomitant]
     Dosage: UNK
     Dates: start: 20060101, end: 20070101
  4. IBUPROFEN [Concomitant]
     Dosage: UNK UNK, PRN

REACTIONS (7)
  - PANCREATITIS [None]
  - GALLBLADDER PAIN [None]
  - BILE DUCT STONE [None]
  - GALLBLADDER DISORDER [None]
  - MUSCLE SPASMS [None]
  - CHOLECYSTITIS ACUTE [None]
  - BACK PAIN [None]
